FAERS Safety Report 17068088 (Version 2)
Quarter: 2020Q1

REPORT INFORMATION
  Report Type: Spontaneous
  Country: JP (occurrence: JP)
  Receive Date: 20191122
  Receipt Date: 20200117
  Transmission Date: 20200409
  Serious: Yes (Other)
  Sender: FDA-Public Use
  Company Number: JP-009507513-1911JPN002292J

PATIENT
  Age: 69 Year
  Sex: Male
  Weight: 53 kg

DRUGS (10)
  1. BILANOA [Concomitant]
     Active Substance: BILASTINE
     Dosage: UNK
     Route: 065
  2. ALIMTA [Suspect]
     Active Substance: PEMETREXED DISODIUM
     Indication: NON-SMALL CELL LUNG CANCER
     Dosage: 800 MILLIGRAM, EVERY 4 WEEKS
     Route: 041
     Dates: start: 20190416, end: 20191023
  3. RANDA [Concomitant]
     Active Substance: CISPLATIN
     Indication: NON-SMALL CELL LUNG CANCER
     Dosage: UNK, EVERY 4 WEEKS
     Route: 065
     Dates: start: 20190416
  4. ALIMTA [Suspect]
     Active Substance: PEMETREXED DISODIUM
     Dosage: 820 MILLIGRAM
     Route: 041
     Dates: start: 20191204
  5. LUNESTA [Concomitant]
     Active Substance: ESZOPICLONE
     Dosage: UNK
     Route: 065
  6. MYSER [Concomitant]
     Dosage: UNK
     Route: 051
  7. KEYTRUDA [Suspect]
     Active Substance: PEMBROLIZUMAB
     Indication: NON-SMALL CELL LUNG CANCER
     Dosage: 200 MILLIGRAM, EVERY 4 WEEKS
     Route: 041
     Dates: start: 20190416, end: 20191023
  8. CARBOPLATIN. [Concomitant]
     Active Substance: CARBOPLATIN
     Indication: NON-SMALL CELL LUNG CANCER
     Dosage: UNK
     Route: 065
     Dates: start: 20190416, end: 2019
  9. PANVITAN [Concomitant]
     Active Substance: VITAMINS
     Dosage: UNK
     Route: 065
  10. G LASTA [Concomitant]
     Active Substance: PEGFILGRASTIM
     Dosage: UNK
     Route: 065
     Dates: start: 2019

REACTIONS (4)
  - Rash [Recovered/Resolved]
  - Ascites [Recovering/Resolving]
  - Pleural effusion [Recovering/Resolving]
  - Renal impairment [Unknown]

NARRATIVE: CASE EVENT DATE: 20190416
